FAERS Safety Report 7288506-1 (Version None)
Quarter: 2011Q1

REPORT INFORMATION
  Report Type: 
  Country: None (occurrence: None)
  Receive Date: 20110211
  Receipt Date: 20110131
  Transmission Date: 20110831
  Serious: Yes (Hospitalization)
  Sender: FDA-Public Use
  Company Number: US-BRISTOL-MYERS SQUIBB COMPANY-14996177

PATIENT
  Age: 43 Year
  Sex: Male

DRUGS (2)
  1. ARIPIPRAZOLE [Suspect]
     Indication: SCHIZOPHRENIA
     Dosage: ARIPIPRAZOLE IM DEPOT D/CD ON 23FEB2010
     Route: 030
     Dates: start: 20090917, end: 20100208
  2. LORAZEPAM [Concomitant]
     Dates: start: 20100202, end: 20100211

REACTIONS (1)
  - PSYCHOTIC DISORDER [None]
